FAERS Safety Report 5197695-4 (Version None)
Quarter: 2006Q4

REPORT INFORMATION
  Report Type: 
  Country: None (occurrence: None)
  Receive Date: 20061228
  Receipt Date: 20061219
  Transmission Date: 20070319
  Serious: Yes (Hospitalization)
  Sender: FDA-Public Use
  Company Number: THQ2006A01212

PATIENT
  Sex: Female

DRUGS (2)
  1. ACTOS [Suspect]
     Dosage: 15 MG, ORAL
     Route: 048
  2. GLUCOPHAGE [Concomitant]

REACTIONS (1)
  - HYPERTENSION [None]
